FAERS Safety Report 9274731 (Version 1)
Quarter: 2013Q2

REPORT INFORMATION
  Report Type: Spontaneous
  Country: US (occurrence: None)
  Receive Date: 20130430
  Receipt Date: 20130430
  Transmission Date: 20140414
  Serious: Yes (Other)
  Sender: FDA-Public Use
  Company Number: None

PATIENT
  Age: 49 Year
  Sex: Female
  Weight: 64.41 kg

DRUGS (3)
  1. METAXALONE [Suspect]
     Indication: MUSCLE SPASMS
     Dosage: 800MG UP TO 3X DAILY
     Route: 048
     Dates: start: 20130424, end: 20130425
  2. METAXALONE [Suspect]
     Indication: PROPHYLAXIS
     Dosage: 800MG UP TO 3X DAILY
     Route: 048
     Dates: start: 20130424, end: 20130425
  3. GABAPENTIN [Suspect]
     Indication: NERVOUS SYSTEM DISORDER
     Dosage: 300 MG 2 PO
     Route: 048
     Dates: start: 20120515, end: 20120529

REACTIONS (4)
  - Hypertension [None]
  - Tachycardia [None]
  - Chest pain [None]
  - Chest discomfort [None]
